FAERS Safety Report 7541356-0 (Version None)
Quarter: 2011Q2

REPORT INFORMATION
  Report Type: 
  Country: None (occurrence: None)
  Receive Date: 20110613
  Receipt Date: 20110604
  Transmission Date: 20111010
  Serious: Yes (Other)
  Sender: FDA-Public Use
  Company Number: ES-PAR PHARMACEUTICAL, INC-2011SCPR003048

PATIENT
  Age: 82 Year
  Sex: Female

DRUGS (4)
  1. LENALIDOMIDE [Suspect]
     Dosage: 10 MG EVERY OTHER DAY
     Route: 065
  2. DEXAMETHASONE [Suspect]
     Indication: MULTIPLE MYELOMA
     Dosage: 20 MG FOR 21 DAYS EVERY 28 DAYS
     Route: 048
  3. LENALIDOMIDE [Suspect]
     Dosage: 15 MG/DAY
     Route: 065
  4. LENALIDOMIDE [Suspect]
     Indication: MULTIPLE MYELOMA
     Dosage: 25 MG/DAY
     Route: 065

REACTIONS (6)
  - NEUTROPENIA [None]
  - ANAEMIA [None]
  - FATIGUE [None]
  - HAEMATOTOXICITY [None]
  - DEEP VEIN THROMBOSIS [None]
  - SOMNOLENCE [None]
